FAERS Safety Report 8991610 (Version 10)
Quarter: 2013Q3

REPORT INFORMATION
  Report Type: Spontaneous
  Country: US (occurrence: US)
  Receive Date: 20121231
  Receipt Date: 20130925
  Transmission Date: 20140515
  Serious: Yes (Other)
  Sender: FDA-Public Use
  Company Number: US-BIOGENIDEC-2012BI063729

PATIENT
  Age: 53 Year
  Sex: Female

DRUGS (16)
  1. TYSABRI [Suspect]
     Indication: MULTIPLE SCLEROSIS
     Route: 042
     Dates: start: 20070703, end: 20121128
  2. TRIPLE ANTIBIOTIC NEOSPORIN [Concomitant]
     Route: 061
  3. POTASSIUM CHLORIDE [Concomitant]
     Indication: HYPOKALAEMIA
  4. LANSOPRAZOLE [Concomitant]
     Route: 048
  5. MIRTAZAPINE [Concomitant]
     Route: 048
  6. XANAX [Concomitant]
  7. WELLBUTRIN [Concomitant]
     Indication: DEPRESSION
     Route: 048
  8. VITAMIN D3 [Concomitant]
     Dosage: DOSE UNIT:1000
     Route: 048
  9. LEXAPRO [Concomitant]
     Route: 048
  10. FLONASE [Concomitant]
     Route: 045
  11. NEURONTIN [Concomitant]
     Route: 048
  12. HUMIBID B [Concomitant]
     Route: 048
  13. DELTASONE [Concomitant]
  14. SUDAFED [Concomitant]
  15. NUVIGIL [Concomitant]
     Route: 048
  16. SOLUMEDROL [Concomitant]

REACTIONS (2)
  - Progressive multifocal leukoencephalopathy [Not Recovered/Not Resolved]
  - Secondary progressive multiple sclerosis [Not Recovered/Not Resolved]
